FAERS Safety Report 6575150-4 (Version None)
Quarter: 2010Q1

REPORT INFORMATION
  Report Type: 
  Country: None (occurrence: None)
  Receive Date: 20100209
  Receipt Date: 20100108
  Transmission Date: 20100710
  Serious: Yes (Life-Threatening, Hospitalization)
  Sender: FDA-Public Use
  Company Number: ZA-SANOFI-AVENTIS-200921559GDDC

PATIENT
  Age: 31 Year
  Sex: Female

DRUGS (13)
  1. TELITHROMYCIN [Suspect]
     Route: 048
     Dates: start: 20090930, end: 20091002
  2. AVELON [Concomitant]
     Indication: DRUG USE FOR UNKNOWN INDICATION
  3. ROCEPHIN [Concomitant]
     Indication: DRUG USE FOR UNKNOWN INDICATION
     Route: 042
     Dates: start: 20090925, end: 20090930
  4. ESOMEPRAZOLE [Concomitant]
     Indication: DRUG USE FOR UNKNOWN INDICATION
     Dates: start: 20090925, end: 20090930
  5. ESOMEPRAZOLE [Concomitant]
     Route: 042
     Dates: start: 20091002
  6. CORTICOSTEROIDS FOR SYSTEMIC USE [Concomitant]
     Indication: DRUG USE FOR UNKNOWN INDICATION
     Route: 042
     Dates: start: 20090925
  7. FLONASE [Concomitant]
     Indication: DRUG USE FOR UNKNOWN INDICATION
     Route: 065
  8. ATROVENT [Concomitant]
     Indication: DRUG USE FOR UNKNOWN INDICATION
     Route: 055
  9. BEROTEC [Concomitant]
     Indication: DRUG USE FOR UNKNOWN INDICATION
     Route: 055
     Dates: start: 20090925
  10. OXYGEN [Concomitant]
     Indication: DRUG USE FOR UNKNOWN INDICATION
     Dates: start: 20090925
  11. DRIXINE [Concomitant]
     Indication: DRUG USE FOR UNKNOWN INDICATION
     Dosage: DOSE:2 PUFF(S)
     Route: 045
     Dates: start: 20090925
  12. SALEX [Concomitant]
     Indication: DRUG USE FOR UNKNOWN INDICATION
     Route: 065
     Dates: start: 20090925
  13. ALL OTHER THERAPEUTIC PRODUCTS [Concomitant]
     Indication: DRUG USE FOR UNKNOWN INDICATION
     Dates: start: 20090925

REACTIONS (9)
  - COAGULOPATHY [None]
  - EPISTAXIS [None]
  - EYE DISORDER [None]
  - EYE PRURITUS [None]
  - FATIGUE [None]
  - HAEMATEMESIS [None]
  - HEPATITIS TOXIC [None]
  - PERIORBITAL HAEMATOMA [None]
  - THROMBOCYTOPENIA [None]
